FAERS Safety Report 17578762 (Version 2)
Quarter: 2020Q1

REPORT INFORMATION
  Report Type: Spontaneous
  Country: US (occurrence: US)
  Receive Date: 20200324
  Receipt Date: 20200328
  Transmission Date: 20200409
  Serious: No
  Sender: FDA-Public Use
  Company Number: US-TEVA-2020-US-1209049

PATIENT
  Age: 68 Year
  Sex: Male

DRUGS (1)
  1. BUPRENORPHINE TRANSDERMAL SYSTEM [Suspect]
     Active Substance: BUPRENORPHINE
     Indication: BACK PAIN
     Dosage: 10 MCG/HR
     Route: 062
     Dates: start: 20200307

REACTIONS (2)
  - Therapeutic product effect incomplete [Unknown]
  - Diarrhoea [Unknown]
